FAERS Safety Report 17485077 (Version 1)
Quarter: 2020Q1

REPORT INFORMATION
  Report Type: Report from Study
  Country: US (occurrence: US)
  Receive Date: 20200302
  Receipt Date: 20200302
  Transmission Date: 20200409
  Serious: Yes (Other)
  Sender: FDA-Public Use
  Company Number: US-SHIRE-US202007490

PATIENT
  Sex: Female

DRUGS (1)
  1. 489 (LISDEXAMFETAMINE DIMESYLATE) [Suspect]
     Active Substance: LISDEXAMFETAMINE DIMESYLATE
     Indication: PRODUCT USED FOR UNKNOWN INDICATION
     Dosage: 70 MILLIGRAM, 1X/DAY:QD
     Route: 048

REACTIONS (6)
  - Mental impairment [Unknown]
  - Condition aggravated [Unknown]
  - Anxiety [Unknown]
  - Stress [Unknown]
  - Overwork [Unknown]
  - Inappropriate schedule of product administration [Unknown]
